FAERS Safety Report 25075622 (Version 1)
Quarter: 2025Q1

REPORT INFORMATION
  Report Type: Report from Study
  Country: ES (occurrence: ES)
  Receive Date: 20250313
  Receipt Date: 20250313
  Transmission Date: 20250409
  Serious: Yes (Other)
  Sender: JOHNSON AND JOHNSON
  Company Number: ES-JNJFOC-20250322923

PATIENT
  Age: 52 Year
  Sex: Female

DRUGS (2)
  1. SIMPONI [Suspect]
     Active Substance: GOLIMUMAB
     Indication: Psoriatic arthropathy
     Route: 058
     Dates: start: 2012
  2. CALCIFEDIOL [Concomitant]
     Active Substance: CALCIFEDIOL

REACTIONS (5)
  - Fall [Recovered/Resolved]
  - Fibula fracture [Recovered/Resolved]
  - Psoriatic arthropathy [Recovered/Resolved]
  - COVID-19 [Unknown]
  - Off label use [Unknown]
